FAERS Safety Report 10073260 (Version 2)
Quarter: 2014Q2

REPORT INFORMATION
  Report Type: Spontaneous
  Country: US (occurrence: US)
  Receive Date: 20140411
  Receipt Date: 20140418
  Transmission Date: 20141212
  Serious: Yes (Other)
  Sender: FDA-Public Use
  Company Number: US-PFIZER INC-2014101604

PATIENT
  Age: 68 Year
  Sex: Male
  Weight: 109.75 kg

DRUGS (1)
  1. GLYSET [Suspect]
     Indication: DIABETES MELLITUS
     Dosage: 10 MG, 3X/DAY
     Route: 048
     Dates: start: 2012

REACTIONS (6)
  - Diabetes mellitus inadequate control [Unknown]
  - Influenza [Not Recovered/Not Resolved]
  - Seasonal allergy [Not Recovered/Not Resolved]
  - Ear infection [Not Recovered/Not Resolved]
  - Sinusitis [Not Recovered/Not Resolved]
  - Constipation [Not Recovered/Not Resolved]
